FAERS Safety Report 10178611 (Version 1)
Quarter: 2014Q2

REPORT INFORMATION
  Report Type: Report from Study
  Country: BR (occurrence: BR)
  Receive Date: 20140519
  Receipt Date: 20140519
  Transmission Date: 20141212
  Serious: Yes (Hospitalization)
  Sender: FDA-Public Use
  Company Number: BR-SA-2014SA060623

PATIENT
  Age: 47 Year
  Sex: Female

DRUGS (1)
  1. FABRAZYME [Suspect]
     Indication: FABRY^S DISEASE
     Route: 042

REACTIONS (4)
  - Cardiac hypertrophy [Unknown]
  - Heart rate increased [Unknown]
  - Influenza [Unknown]
  - Pyrexia [Unknown]
